FAERS Safety Report 24279253 (Version 2)
Quarter: 2024Q3

REPORT INFORMATION
  Report Type: Spontaneous
  Country: US (occurrence: US)
  Receive Date: 20240903
  Receipt Date: 20240916
  Transmission Date: 20241017
  Serious: Yes (Other)
  Sender: INSUD PHARMA
  Company Number: US-INSUD PHARMA-2408US06793

PATIENT

DRUGS (3)
  1. NUVESSA [Suspect]
     Active Substance: METRONIDAZOLE
     Indication: Staphylococcal osteomyelitis
     Dosage: UNK
     Route: 042
  2. VANCOMYCIN [Suspect]
     Active Substance: VANCOMYCIN
     Indication: Staphylococcal osteomyelitis
     Dosage: UNK
     Route: 042
  3. CEFEPIME [Suspect]
     Active Substance: CEFEPIME HYDROCHLORIDE
     Indication: Staphylococcal osteomyelitis
     Dosage: UNK
     Route: 042

REACTIONS (1)
  - Clostridium difficile colitis [Unknown]
